FAERS Safety Report 22366579 (Version 1)
Quarter: 2023Q2

REPORT INFORMATION
  Report Type: Spontaneous
  Country: CN (occurrence: CN)
  Receive Date: 20230525
  Receipt Date: 20230525
  Transmission Date: 20230722
  Serious: Yes (Other)
  Sender: FDA-Public Use
  Company Number: CN-PFIZER INC-PV202300090384

PATIENT
  Age: 50 Year
  Sex: Female
  Weight: 60 kg

DRUGS (3)
  1. CYTARABINE [Suspect]
     Active Substance: CYTARABINE
     Indication: Burkitt^s lymphoma
     Dosage: 0.05 G, 1X/DAY
     Route: 037
     Dates: start: 20230517, end: 20230517
  2. DEXAMETHASONE SODIUM PHOSPHATE [Suspect]
     Active Substance: DEXAMETHASONE SODIUM PHOSPHATE
     Indication: Burkitt^s lymphoma
     Dosage: 5 MG, 1X/DAY
     Route: 037
     Dates: start: 20230517, end: 20230517
  3. SODIUM CHLORIDE [Suspect]
     Active Substance: SODIUM CHLORIDE
     Indication: Burkitt^s lymphoma
     Dosage: 6 ML, 1X/DAY
     Route: 037
     Dates: start: 20230517, end: 20230517

REACTIONS (5)
  - Hypoaesthesia [Recovered/Resolved]
  - Pain in extremity [Recovered/Resolved]
  - Anorectal disorder [Recovered/Resolved]
  - Perineal pain [Recovered/Resolved]
  - Perineal disorder [Recovered/Resolved]

NARRATIVE: CASE EVENT DATE: 20230517
